FAERS Safety Report 23654530 (Version 1)
Quarter: 2024Q1

REPORT INFORMATION
  Report Type: Spontaneous
  Country: US (occurrence: None)
  Receive Date: 20240320
  Receipt Date: 20240320
  Transmission Date: 20240409
  Serious: Yes (Hospitalization)
  Sender: FDA-Public Use
  Company Number: None

PATIENT
  Sex: Male
  Weight: 106.9 kg

DRUGS (1)
  1. CISPLATIN [Suspect]
     Active Substance: CISPLATIN

REACTIONS (11)
  - Hypernatraemia [None]
  - Acute kidney injury [None]
  - Pneumonia [None]
  - Respiratory failure [None]
  - Sepsis [None]
  - Pneumonia aspiration [None]
  - Cardio-respiratory arrest [None]
  - Supraventricular tachycardia [None]
  - Hypotension [None]
  - Cardiac arrest [None]
  - Lung abscess [None]

NARRATIVE: CASE EVENT DATE: 20240222
